FAERS Safety Report 14242911 (Version 1)
Quarter: 2017Q4

REPORT INFORMATION
  Report Type: Report from Study
  Country: US (occurrence: US)
  Receive Date: 20171201
  Receipt Date: 20171201
  Transmission Date: 20180321
  Serious: Yes (Hospitalization, Other)
  Sender: FDA-Public Use
  Company Number: US-SA-2017SA238988

PATIENT
  Sex: Female

DRUGS (2)
  1. MOZOBIL [Suspect]
     Active Substance: PLERIXAFOR
     Indication: SICKLE CELL ANAEMIA
     Route: 065
     Dates: start: 20171101, end: 20171101
  2. MOZOBIL [Suspect]
     Active Substance: PLERIXAFOR
     Indication: SICKLE CELL ANAEMIA
     Route: 065
     Dates: start: 20171031, end: 20171031

REACTIONS (3)
  - Pain [Recovered/Resolved]
  - Sickle cell anaemia with crisis [Recovered/Resolved]
  - Chest discomfort [Recovered/Resolved]

NARRATIVE: CASE EVENT DATE: 20171101
